FAERS Safety Report 21505003 (Version 3)
Quarter: 2023Q1

REPORT INFORMATION
  Report Type: Spontaneous
  Country: DE (occurrence: DE)
  Receive Date: 20221025
  Receipt Date: 20230118
  Transmission Date: 20230418
  Serious: Yes (Death, Other)
  Sender: FDA-Public Use
  Company Number: DE-VALIDUS PHARMACEUTICALS LLC-DE-VDP-2022-015776

PATIENT

DRUGS (76)
  1. LASIX [Suspect]
     Active Substance: FUROSEMIDE
     Indication: Oedema
     Dosage: 1 DF
     Route: 065
     Dates: end: 19950112
  2. LASIX [Suspect]
     Active Substance: FUROSEMIDE
     Indication: Polyuria
     Dosage: ADMINISTERED ON 13 JAN AND ON 15 JAN 1995
     Route: 065
     Dates: start: 19950113, end: 19950115
  3. FOLIC ACID [Suspect]
     Active Substance: FOLIC ACID
     Indication: Iron deficiency
     Dosage: 2 DF, QD
     Route: 065
     Dates: start: 19950119
  4. BISOLVON [Suspect]
     Active Substance: BROMHEXINE HYDROCHLORIDE
     Indication: Cough
     Dosage: UNK
     Route: 048
     Dates: start: 19950116, end: 19950116
  5. MIDAZOLAM [Suspect]
     Active Substance: MIDAZOLAM
     Indication: Anaesthesia
     Dosage: UNK
     Route: 065
     Dates: start: 19950113, end: 19950113
  6. BUTYLSCOPOLAMINE BROMIDE [Suspect]
     Active Substance: BUTYLSCOPOLAMINE BROMIDE
     Indication: Pain
     Dosage: UNK
     Route: 065
     Dates: start: 19950130, end: 19950130
  7. BROMAZEPAM [Suspect]
     Active Substance: BROMAZEPAM
     Indication: Sedation
     Dosage: 0.2 DF
     Route: 048
     Dates: start: 19550128, end: 19550128
  8. FERROQUINE [Suspect]
     Active Substance: FERROQUINE
     Indication: Iron deficiency
     Dosage: 2 DF, QD
     Route: 065
     Dates: start: 19550119
  9. CYANOCOBALAMIN [Suspect]
     Active Substance: CYANOCOBALAMIN
     Indication: Iron deficiency
     Dosage: 2 DF, QD
     Route: 065
     Dates: start: 19950119
  10. ASPIRIN [Suspect]
     Active Substance: ASPIRIN
     Indication: Thrombosis prophylaxis
     Dosage: UNK
     Route: 065
     Dates: start: 19950116, end: 19950124
  11. CEFUROXIME SODIUM [Suspect]
     Active Substance: CEFUROXIME SODIUM
     Indication: Infection
     Dosage: 3 DF
     Route: 065
     Dates: start: 19950124, end: 19950131
  12. TRAMADOL [Suspect]
     Active Substance: TRAMADOL
     Indication: Pain
     Dosage: UNK
     Route: 065
     Dates: start: 19950126, end: 19950126
  13. ACETYLCYSTEINE [Suspect]
     Active Substance: ACETYLCYSTEINE
     Indication: Cough
     Dosage: 3 DF
     Route: 065
     Dates: start: 19950119
  14. METOCLOPRAMIDE HYDROCHLORIDE [Suspect]
     Active Substance: METOCLOPRAMIDE HYDROCHLORIDE
     Indication: Nausea
     Dosage: 60 GTT DROPS, QD
     Route: 065
     Dates: start: 19950129
  15. POTASSIUM CARBONATE\POTASSIUM CITRATE [Suspect]
     Active Substance: POTASSIUM CARBONATE\POTASSIUM CITRATE
     Indication: Blood potassium decreased
     Dosage: UNK
     Route: 065
     Dates: start: 19950119, end: 19950120
  16. POTASSIUM CARBONATE\POTASSIUM CITRATE [Suspect]
     Active Substance: POTASSIUM CARBONATE\POTASSIUM CITRATE
     Dosage: UNK
     Route: 065
     Dates: start: 19950123, end: 19950127
  17. DOPAMINE [Suspect]
     Active Substance: DOPAMINE HYDROCHLORIDE
     Indication: Cardiovascular disorder
     Dosage: 3 ML/H
     Route: 065
     Dates: start: 19950113, end: 19950113
  18. OXAZEPAM [Suspect]
     Active Substance: OXAZEPAM
     Indication: Sleep disorder
     Dosage: UNK
     Route: 065
     Dates: start: 19950121, end: 19950121
  19. ALLOPURINOL [Suspect]
     Active Substance: ALLOPURINOL
     Indication: Hyperuricaemia
     Dosage: UNK
     Route: 065
     Dates: start: 19950126
  20. DIGITOXIN [Suspect]
     Active Substance: DIGITOXIN
     Indication: Cardiac failure
     Dosage: NOT GIVEN FROM 12 JAN TO 22 JAN 95
     Route: 065
     Dates: end: 19950124
  21. DIGITOXIN [Suspect]
     Active Substance: DIGITOXIN
     Dosage: NOT GIVEN FROM 12 JAN TO 22 JAN 95
     Route: 065
     Dates: start: 19950124
  22. FERROUS GLYCINE SULFATE [Suspect]
     Active Substance: FERROUS GLYCINE SULFATE
     Indication: Iron deficiency
     Dosage: 2 DF, QD
     Route: 065
     Dates: start: 19950119
  23. FLUNITRAZEPAM [Suspect]
     Active Substance: FLUNITRAZEPAM
     Indication: Anaesthesia
     Dosage: UNK
     Route: 042
     Dates: start: 19950113, end: 19950113
  24. FERROUS GLYCINE SULFATE [Suspect]
     Active Substance: FERROUS GLYCINE SULFATE
     Indication: Product used for unknown indication
     Dosage: UNK
     Route: 065
  25. FERROUS GLYCINE SULFATE [Suspect]
     Active Substance: FERROUS GLYCINE SULFATE
     Dosage: UNK
     Route: 065
  26. BACTRIM [Suspect]
     Active Substance: SULFAMETHOXAZOLE\TRIMETHOPRIM
     Indication: Infection
     Dosage: 2 DF, QD
     Route: 065
     Dates: start: 19950122, end: 19950123
  27. METOCLOPRAMIDE HYDROCHLORIDE [Suspect]
     Active Substance: METOCLOPRAMIDE HYDROCHLORIDE
     Indication: Product used for unknown indication
     Dosage: UNK
     Route: 065
  28. VALIUM [Suspect]
     Active Substance: DIAZEPAM
     Indication: Product used for unknown indication
     Dosage: UNK
     Route: 065
  29. VALIUM [Suspect]
     Active Substance: DIAZEPAM
     Indication: Pain
     Dosage: UNK
     Route: 065
  30. DOBUTREX [Concomitant]
     Active Substance: DOBUTAMINE HYDROCHLORIDE
     Indication: Cardiovascular disorder
     Dosage: UNK
     Route: 065
     Dates: start: 19950114, end: 19950115
  31. DIGITOXIN [Concomitant]
     Active Substance: DIGITOXIN
     Indication: Left ventricular failure
     Dosage: UNK
     Route: 065
     Dates: start: 19950113, end: 19950114
  32. CLEMASTINE [Concomitant]
     Active Substance: CLEMASTINE
     Indication: Hypersensitivity
     Dosage: UNK
     Route: 065
     Dates: start: 19950203, end: 19950203
  33. ENFLURAN [Concomitant]
     Indication: Anaesthesia
     Dosage: INHALATION VAPOUR, SOLUTION
     Route: 065
     Dates: start: 19950113, end: 19950113
  34. GELAFUNDINA [Concomitant]
     Indication: Hypovolaemia
     Dosage: UNK
     Route: 065
     Dates: start: 19950113, end: 19950113
  35. CAPTOPRIL [Concomitant]
     Active Substance: CAPTOPRIL
     Indication: Cardiac failure
     Dosage: UNK
     Route: 065
     Dates: start: 19950112, end: 19950112
  36. RINGERS SOLUTION [Concomitant]
     Active Substance: CALCIUM CHLORIDE\POTASSIUM CHLORIDE\SODIUM CHLORIDE
     Indication: Fluid replacement
     Dosage: UNK
     Route: 065
     Dates: start: 19950113, end: 19950201
  37. ANTITHROMBIN III HUMAN [Concomitant]
     Active Substance: ANTITHROMBIN III HUMAN
     Indication: Coagulopathy
     Dosage: UNK
     Route: 065
     Dates: start: 19950113, end: 19950113
  38. SODIUM CHLORIDE [Concomitant]
     Active Substance: SODIUM CHLORIDE
     Indication: Hyponatraemia
     Dosage: UNK
     Route: 065
     Dates: start: 19950115, end: 19950115
  39. PIRITRAMIDE [Concomitant]
     Active Substance: PIRITRAMIDE
     Indication: Pain
     Dosage: UNK
     Route: 065
     Dates: start: 19950113, end: 19950115
  40. ALBUMIN HUMAN [Concomitant]
     Active Substance: ALBUMIN HUMAN
     Indication: Hypovolaemia
     Dosage: UNK
     Route: 065
     Dates: start: 19950113, end: 19950113
  41. DULCOLAX (BISACODYL) [Concomitant]
     Active Substance: BISACODYL
     Indication: Constipation
     Dosage: UNK
     Route: 065
     Dates: start: 19950116, end: 19950202
  42. ETHACRYNIC ACID [Concomitant]
     Active Substance: ETHACRYNIC ACID
     Indication: Oedema
     Dosage: UNK
     Route: 065
     Dates: start: 19950116, end: 19950116
  43. CLEMASTINE [Concomitant]
     Active Substance: CLEMASTINE
     Indication: Hypersensitivity
     Dosage: UNK
     Route: 065
     Dates: start: 19950202
  44. HEPARIN [Concomitant]
     Active Substance: HEPARIN SODIUM
     Indication: Thrombosis prophylaxis
     Dosage: UNK
     Route: 065
     Dates: end: 19950109
  45. DIGOXIN [Concomitant]
     Active Substance: DIGOXIN
     Indication: Cardiac failure
     Dosage: UNK
     Route: 065
     Dates: start: 19950107
  46. SUFENTA [Concomitant]
     Active Substance: SUFENTANIL CITRATE
     Indication: Anaesthesia
     Dosage: UNK
     Route: 065
     Dates: start: 19950113, end: 19950113
  47. FENTANYL [Concomitant]
     Active Substance: FENTANYL
     Indication: Anaesthesia
     Dosage: UNK
     Route: 065
     Dates: start: 19950113, end: 19950113
  48. HEPARIN SODIUM [Concomitant]
     Active Substance: HEPARIN SODIUM
     Indication: Thrombosis prophylaxis
     Dosage: UNK
     Route: 065
     Dates: start: 19950109
  49. PREDNISOLONE SODIUM SUCCINATE [Concomitant]
     Active Substance: PREDNISOLONE SODIUM SUCCINATE
     Indication: Hypersensitivity
     Dosage: UNK
     Route: 065
     Dates: start: 19950202
  50. EUCALYPTUS [EUCALYPTUS GLOBULUS] [Concomitant]
     Indication: Prophylaxis
     Dosage: UNK
     Route: 065
  51. NITROLINGUAL [Concomitant]
     Active Substance: NITROGLYCERIN
     Indication: Cardiac failure
     Dosage: UNK
     Route: 065
     Dates: start: 19950113, end: 19950113
  52. LACTULOSE [Concomitant]
     Active Substance: LACTULOSE
     Indication: Constipation
     Dosage: UNK
     Route: 065
     Dates: start: 19950109, end: 19950117
  53. CALCIUM [Concomitant]
     Active Substance: CALCIUM
     Indication: Blood calcium decreased
     Dosage: UNK
     Route: 065
     Dates: start: 19950113, end: 19950113
  54. LEVOTHYROXINE SODIUM [Concomitant]
     Active Substance: LEVOTHYROXINE SODIUM
     Indication: Thyroid disorder
     Dosage: UNK
     Route: 065
  55. ISOSORBIDE DINITRATE [Concomitant]
     Active Substance: ISOSORBIDE DINITRATE
     Indication: Coronary artery disease
     Dosage: UNK
     Route: 065
     Dates: start: 19950112, end: 19950112
  56. SUCRALFATE [Concomitant]
     Active Substance: SUCRALFATE
     Indication: Prophylaxis
     Dosage: UNK
     Route: 065
     Dates: end: 19950119
  57. ETHACRYNIC ACID [Concomitant]
     Active Substance: ETHACRYNIC ACID
     Indication: Polyuria
     Dosage: UNK
     Route: 065
     Dates: start: 19950113, end: 19950115
  58. DILTIAZEM [Concomitant]
     Active Substance: DILTIAZEM
     Indication: Coronary artery disease
     Dosage: UNK
     Route: 065
     Dates: start: 19950113, end: 19950113
  59. METOPROLOL [Concomitant]
     Active Substance: METOPROLOL
     Indication: Hypertension
     Dosage: UNK
     Route: 065
     Dates: end: 19950112
  60. MANNITOL [Concomitant]
     Active Substance: MANNITOL
     Indication: Polyuria
     Dosage: UNK
     Route: 065
     Dates: start: 19950113, end: 19950115
  61. CIPROFLOXACIN HYDROCHLORIDE [Concomitant]
     Active Substance: CIPROFLOXACIN HYDROCHLORIDE
     Indication: Infection
     Dosage: UNK
     Route: 065
     Dates: start: 19950203, end: 19950203
  62. SUPRARENIN [Concomitant]
     Active Substance: EPINEPHRINE
     Indication: Cardiovascular disorder
     Dosage: UNK
     Route: 065
     Dates: start: 19950113, end: 19950113
  63. NOREPINEPHRINE HYDROCHLORIDE, (+/-)- [Concomitant]
     Active Substance: NOREPINEPHRINE HYDROCHLORIDE, (+/-)-
     Indication: Cardiovascular disorder
     Dosage: UNK
     Route: 065
     Dates: start: 19950113, end: 19950113
  64. PANCURONIUM [Concomitant]
     Active Substance: PANCURONIUM
     Indication: Anaesthesia
     Dosage: UNK
     Route: 065
     Dates: start: 19950113, end: 19950113
  65. BUPRENORPHINE HYDROCHLORIDE [Concomitant]
     Active Substance: BUPRENORPHINE HYDROCHLORIDE
     Indication: Pain
     Dosage: UNK
     Route: 065
  66. POTASSIUM CHLORIDE [Concomitant]
     Active Substance: POTASSIUM CHLORIDE
     Indication: Hypokalaemia
     Dosage: UNK
     Route: 065
     Dates: start: 19950113, end: 19950201
  67. ADALAT [Concomitant]
     Active Substance: NIFEDIPINE
     Indication: Hypertension
     Dosage: UNK
     Route: 065
     Dates: start: 19950106, end: 19950112
  68. KCL [Concomitant]
     Active Substance: POTASSIUM CHLORIDE
     Indication: Blood potassium decreased
     Dosage: UNK
     Route: 065
     Dates: start: 19950113, end: 19950113
  69. INSULIN NOS [Concomitant]
     Active Substance: INSULIN NOS
     Indication: Blood glucose increased
     Dosage: UNK
     Route: 065
     Dates: start: 19950113, end: 19950115
  70. DEXTROSE [Concomitant]
     Active Substance: DEXTROSE
     Indication: Parenteral nutrition
     Dosage: UNK
     Route: 065
     Dates: start: 19950114, end: 19950114
  71. MAGNESIUM ASPARTATE\POTASSIUM ASPARTATE [Concomitant]
     Active Substance: MAGNESIUM ASPARTATE\POTASSIUM ASPARTATE
     Indication: Electrolyte imbalance
     Dosage: UNK
     Route: 065
     Dates: start: 19950113, end: 19950113
  72. PERFAN [Concomitant]
     Active Substance: ENOXIMONE
     Indication: Cardiac failure
     Dosage: UNK
     Route: 065
     Dates: start: 19950113, end: 19950113
  73. TRASYLOL [Concomitant]
     Active Substance: APROTININ
     Indication: Coagulopathy
     Dosage: UNK
     Route: 065
     Dates: start: 19950113, end: 19950113
  74. EUCALYPTUS OIL [Concomitant]
     Active Substance: EUCALYPTUS OIL
     Indication: Product used for unknown indication
     Dosage: UNK
     Route: 065
  75. NOVODIGAL (.BETA.-ACETYLDIGOXIN) [Concomitant]
     Active Substance: .BETA.-ACETYLDIGOXIN
     Indication: Product used for unknown indication
     Dosage: UNK
     Route: 065
     Dates: start: 19550107
  76. METOPROLOL SUCCINATE [Concomitant]
     Active Substance: METOPROLOL SUCCINATE
     Indication: Product used for unknown indication
     Dosage: UNK
     Route: 065
     Dates: start: 19950112

REACTIONS (12)
  - Circulatory collapse [Fatal]
  - Toxic epidermal necrolysis [Fatal]
  - Cardiac failure [Unknown]
  - Blood lactate dehydrogenase increased [Unknown]
  - Conjunctivitis [Unknown]
  - Lymphocytosis [Unknown]
  - Blood creatinine increased [Unknown]
  - Gamma-glutamyltransferase increased [Unknown]
  - Rash [Unknown]
  - Constipation [Unknown]
  - Pyrexia [Unknown]
  - Pruritus [Unknown]

NARRATIVE: CASE EVENT DATE: 19950130
